FAERS Safety Report 7764104-8 (Version None)
Quarter: 2011Q3

REPORT INFORMATION
  Report Type: 
  Country: None (occurrence: None)
  Receive Date: 20110920
  Receipt Date: 20110920
  Transmission Date: 20111222
  Serious: Yes (Other)
  Sender: FDA-Public Use
  Company Number: None

PATIENT
  Age: 79 Year
  Sex: Female
  Weight: 72.1219 kg

DRUGS (1)
  1. CLONAZEPAM [Suspect]
     Indication: AUTOIMMUNE DISORDER
     Dosage: 0.5 MG 1 - AT BEDTIME
     Dates: start: 20110807

REACTIONS (4)
  - PRODUCT COUNTERFEIT [None]
  - PAIN [None]
  - PRODUCT SUBSTITUTION ISSUE [None]
  - NEUROMYOPATHY [None]
